FAERS Safety Report 24223553 (Version 1)
Quarter: 2024Q3

REPORT INFORMATION
  Report Type: Spontaneous
  Country: US (occurrence: None)
  Receive Date: 20240819
  Receipt Date: 20240819
  Transmission Date: 20241017
  Serious: Yes (Death)
  Sender: Public
  Company Number: None

PATIENT
  Sex: Female

DRUGS (5)
  1. PROLIA [Suspect]
     Active Substance: DENOSUMAB
     Indication: Osteoarthritis
     Dosage: FREQ: INJECT 1 ML UNDER THE SKIN (SUBCUTANEOUS INJECTION) EVERY 6 MONTHS
     Route: 058
     Dates: start: 20210219
  2. LOSARTAN POT [Concomitant]
  3. MELOXICAM [Concomitant]
  4. PAXIL [Concomitant]
  5. SIMVASTATIN [Concomitant]

REACTIONS (1)
  - Death [None]
